FAERS Safety Report 10412590 (Version 1)
Quarter: 2014Q2

REPORT INFORMATION
  Report Type: Spontaneous
  Country: US (occurrence: None)
  Receive Date: 20140604
  Receipt Date: 20140604
  Transmission Date: 20141212
  Serious: Yes (Other)
  Sender: FDA-Public Use
  Company Number: 20090528CINRY1002

PATIENT
  Age: 50 Year
  Sex: Female

DRUGS (15)
  1. CINRYZE [Suspect]
     Indication: HEREDITARY ANGIOEDEMA
     Dosage: (1000 UNIT,1 IN 3 D)
     Route: 042
     Dates: start: 20091223, end: 200901
  2. CINRYZE [Suspect]
     Indication: PROPHYLAXIS
     Dosage: (1000 UNIT,1 IN 3 D)
     Route: 042
     Dates: start: 20091223, end: 200901
  3. IBUPROFEN [Concomitant]
  4. ACETAMINOPHEN (PARACETAMOL) [Concomitant]
  5. WELLBUTRIN (BUPROPION) [Concomitant]
  6. EFFEXOR XR (VENLAFAXINE HYDROCHLORIDE) (75 MILLIGRAM, CAPSULE) (VENLAFAXINE HYDROCHLORIDE) [Concomitant]
  7. NEXIUM (ESOMEPRAZOLE MAGNESIUM) [Concomitant]
  8. SEROQUEL (QUETIAPINE) [Concomitant]
  9. TOPAMAX (TOPIRAMATE) [Concomitant]
  10. NASACORT AQ (TRIAMCINOLONE ACETONIDE) [Concomitant]
  11. ZOFRAN (ONDANSETRON) [Concomitant]
  12. ZOMIG ZMT (ZOLMITRIPTAN) [Concomitant]
  13. CALCIUM CARBONATE W/ VITAMIN D (LEKOVIT CA) [Concomitant]
  14. COENZYME 10 (UBIDECARENONE) [Concomitant]
  15. VITAMIN B2 (RIBOFLAVIN) [Concomitant]

REACTIONS (9)
  - Blood creatinine increased [None]
  - Dyspnoea [None]
  - Dizziness [None]
  - Heart rate abnormal [None]
  - Hypotension [None]
  - Red blood cell count decreased [None]
  - Eating disorder [None]
  - Hereditary angioedema [None]
  - Blood chloride increased [None]
